FAERS Safety Report 19405955 (Version 1)
Quarter: 2021Q2

REPORT INFORMATION
  Report Type: Report from Study
  Country: None (occurrence: US)
  Receive Date: 20210611
  Receipt Date: 20210611
  Transmission Date: 20210717
  Serious: Yes (Other)
  Sender: FDA-Public Use
  Company Number: US-ABBVIE-21K-163-3942232-00

PATIENT
  Sex: Male

DRUGS (2)
  1. RITUXAN [Concomitant]
     Active Substance: RITUXIMAB
     Indication: PRODUCT USED FOR UNKNOWN INDICATION
  2. IMBRUVICA [Suspect]
     Active Substance: IBRUTINIB
     Indication: WALDENSTROM^S MACROGLOBULINAEMIA
     Route: 048
     Dates: start: 201912

REACTIONS (6)
  - Intervertebral disc degeneration [Unknown]
  - Myalgia [Unknown]
  - Fatigue [Unknown]
  - Lumbar puncture [Unknown]
  - Nerve compression [Unknown]
  - Pain [Unknown]
